FAERS Safety Report 8796391 (Version 1)
Quarter: 2012Q4

REPORT INFORMATION
  Report Type: 
  Country: US (occurrence: US)
  Receive Date: 20120919
  Receipt Date: 20120919
  Transmission Date: 20130627
  Serious: Yes (Other)
  Sender: FDA-Public Use
  Company Number: US-PFIZER INC-2012230699

PATIENT
  Age: 57 Year
  Sex: Female
  Weight: 68.03 kg

DRUGS (6)
  1. CELEBREX [Suspect]
     Indication: SPINAL PAIN
     Dosage: 200 mg, 1x/day
     Route: 048
  2. LYRICA [Suspect]
     Indication: FIBROMYALGIA
     Dosage: UNK, 3x/day
     Route: 048
     Dates: end: 2008
  3. LYRICA [Suspect]
     Indication: SPINAL PAIN
  4. KLONOPIN [Concomitant]
     Indication: ANXIETY
     Dosage: UNK
  5. KLONOPIN [Concomitant]
     Indication: SLEEP DISORDER
  6. RESTORIL [Concomitant]
     Indication: SLEEP DISORDER
     Dosage: UNK

REACTIONS (16)
  - Road traffic accident [Unknown]
  - Vision blurred [Unknown]
  - Neck injury [Unknown]
  - Bile duct stenosis [Unknown]
  - Weight increased [Unknown]
  - Dysphonia [Unknown]
  - Hepatic enzyme abnormal [Unknown]
  - Anaemia [Unknown]
  - Muscular weakness [Unknown]
  - Constipation [Unknown]
  - Abdominal distension [Unknown]
  - Swelling [Unknown]
  - Drug ineffective [Unknown]
  - Drug hypersensitivity [Unknown]
  - Nausea [Unknown]
  - Dizziness [Unknown]
